FAERS Safety Report 4368327-X (Version None)
Quarter: 2004Q2

REPORT INFORMATION
  Report Type: 
  Country: None (occurrence: None)
  Receive Date: 20040525
  Receipt Date: 20040512
  Transmission Date: 20050107
  Serious: Yes (Hospitalization)
  Sender: FDA-Public Use
  Company Number: MK200405-0206-1

PATIENT
  Age: 77 Year
  Sex: Female

DRUGS (3)
  1. OPTIRAY 350 [Suspect]
     Dosage: 103 ML,
     Dates: start: 20020905, end: 20020905
  2. HEPARIN 4000 UNITS IV [Concomitant]
  3. ISOSORBIDE DINITRATE [Concomitant]

REACTIONS (1)
  - AMNESIA [None]
